APPROVED DRUG PRODUCT: TIMOLOL MALEATE
Active Ingredient: TIMOLOL MALEATE
Strength: 20MG
Dosage Form/Route: TABLET;ORAL
Application: A207556 | Product #003 | TE Code: AB
Applicant: RISING PHARMA HOLDINGS INC
Approved: May 2, 2019 | RLD: No | RS: No | Type: RX